FAERS Safety Report 14209688 (Version 2)
Quarter: 2017Q4

REPORT INFORMATION
  Report Type: Spontaneous
  Country: US (occurrence: US)
  Receive Date: 20171121
  Receipt Date: 20171123
  Transmission Date: 20180321
  Serious: No
  Sender: FDA-Public Use
  Company Number: US-PFIZER INC-2017495692

PATIENT
  Age: 55 Year
  Sex: Male

DRUGS (4)
  1. HYDROXYCHLOROQUINE [Suspect]
     Active Substance: HYDROXYCHLOROQUINE
  2. IMITREX [Suspect]
     Active Substance: SUMATRIPTAN SUCCINATE
  3. ENBREL [Suspect]
     Active Substance: ETANERCEPT
  4. SULFASALAZINE. [Suspect]
     Active Substance: SULFASALAZINE

REACTIONS (1)
  - Drug hypersensitivity [Unknown]
